FAERS Safety Report 9577303 (Version 1)
Quarter: 2013Q4

REPORT INFORMATION
  Report Type: Spontaneous
  Country: US (occurrence: US)
  Receive Date: 20131001
  Receipt Date: 20131001
  Transmission Date: 20140711
  Serious: No
  Sender: FDA-Public Use
  Company Number: US-AMGEN-USASP2013007394

PATIENT
  Sex: Male
  Weight: 74.83 kg

DRUGS (5)
  1. ENBREL [Suspect]
     Indication: PSORIASIS
     Dosage: 50 MG, QWK
     Route: 058
  2. RAMIPRIL [Concomitant]
     Dosage: 5 MG, UNK
  3. GLUCOSAMIN CHONDROITIN             /01430901/ [Concomitant]
     Dosage: 250-200
  4. VITAMIN D                          /00107901/ [Concomitant]
     Dosage: 1000 UNIT, UNK
  5. ASPIRIN [Concomitant]
     Dosage: 81 MG, UNK

REACTIONS (2)
  - Neck pain [Unknown]
  - Pain in extremity [Unknown]
